FAERS Safety Report 13557649 (Version 1)
Quarter: 2017Q2

REPORT INFORMATION
  Report Type: Spontaneous
  Country: US (occurrence: US)
  Receive Date: 20170518
  Receipt Date: 20170518
  Transmission Date: 20170830
  Serious: Yes (Other)
  Sender: FDA-Public Use
  Company Number: US-009507513-1705USA006746

PATIENT
  Age: 55 Year
  Sex: Female

DRUGS (6)
  1. NOXAFIL [Interacting]
     Active Substance: POSACONAZOLE
     Dosage: ORAL PREDNISONE DOSE FROM 5 TO 60 MG WITH SUBSEQUENT TAPER
     Route: 048
  2. SIROLIMUS. [Interacting]
     Active Substance: SIROLIMUS
     Dosage: 3 MG, QD
  3. NOXAFIL [Suspect]
     Active Substance: POSACONAZOLE
     Dosage: 200 MG, Q6H
     Route: 048
  4. NOXAFIL [Interacting]
     Active Substance: POSACONAZOLE
     Dosage: 400 MG, BID
     Route: 048
  5. SIROLIMUS. [Interacting]
     Active Substance: SIROLIMUS
     Dosage: 0.5 MG, QD
     Route: 048
  6. NOXAFIL [Interacting]
     Active Substance: POSACONAZOLE
     Dosage: 200 MG, Q6H
     Route: 048

REACTIONS (4)
  - Hepatic enzyme increased [Unknown]
  - Off label use [Unknown]
  - Product use issue [Unknown]
  - Drug interaction [Unknown]
